FAERS Safety Report 13968066 (Version 1)
Quarter: 2017Q3

REPORT INFORMATION
  Report Type: Spontaneous
  Country: US (occurrence: US)
  Receive Date: 20170914
  Receipt Date: 20170914
  Transmission Date: 20171128
  Serious: No
  Sender: FDA-Public Use
  Company Number: US-ELI_LILLY_AND_COMPANY-US201709004914

PATIENT
  Sex: Female

DRUGS (1)
  1. HUMALOG MIX75/25 [Suspect]
     Active Substance: INSULIN LISPRO
     Indication: DIABETES MELLITUS
     Dosage: 40 U, BID
     Route: 058

REACTIONS (5)
  - Musculoskeletal discomfort [Recovering/Resolving]
  - Blood glucose increased [Unknown]
  - Dysstasia [Unknown]
  - Malaise [Unknown]
  - Arthralgia [Unknown]

NARRATIVE: CASE EVENT DATE: 20170911
